FAERS Safety Report 6093216-2 (Version None)
Quarter: 2009Q1

REPORT INFORMATION
  Report Type: 
  Country: None (occurrence: None)
  Receive Date: 20090226
  Receipt Date: 20090223
  Transmission Date: 20090719
  Serious: Yes (Other)
  Sender: FDA-Public Use
  Company Number: ES-BRISTOL-MYERS SQUIBB COMPANY-14517965

PATIENT
  Age: 35 Year
  Sex: Male

DRUGS (3)
  1. DIDANOSINE [Suspect]
     Indication: HIV INFECTION
     Dates: start: 20020717, end: 20030505
  2. TENOFOVIR [Suspect]
     Indication: HIV INFECTION
     Dates: start: 20020717, end: 20030505
  3. LOPINAVIR AND RITONAVIR [Suspect]
     Indication: HIV INFECTION
     Dates: start: 20020717, end: 20030505

REACTIONS (6)
  - CUSHING'S SYNDROME [None]
  - DRUG TOXICITY [None]
  - GYNAECOMASTIA [None]
  - HYPERLACTACIDAEMIA [None]
  - HYPERTENSION [None]
  - HYPOTHYROIDISM [None]
